FAERS Safety Report 24434584 (Version 2)
Quarter: 2024Q4

REPORT INFORMATION
  Report Type: Spontaneous
  Country: US (occurrence: US)
  Receive Date: 20241014
  Receipt Date: 20241107
  Transmission Date: 20250114
  Serious: No
  Sender: PFIZER
  Company Number: US-PFIZER INC-PV202400119143

PATIENT
  Age: 34 Year
  Sex: Female

DRUGS (1)
  1. ZAVZPRET [Suspect]
     Active Substance: ZAVEGEPANT HYDROCHLORIDE
     Dosage: UNK
     Dates: start: 2024

REACTIONS (4)
  - Dysgeusia [Recovering/Resolving]
  - Nausea [Recovering/Resolving]
  - Photophobia [Recovering/Resolving]
  - Hyperacusis [Recovering/Resolving]
